FAERS Safety Report 9510538 (Version 1)
Quarter: 2013Q3

REPORT INFORMATION
  Report Type: Report from Study
  Country: BR (occurrence: BR)
  Receive Date: 20130909
  Receipt Date: 20130909
  Transmission Date: 20140515
  Serious: Yes (Other)
  Sender: FDA-Public Use
  Company Number: PHHY2013BR098501

PATIENT
  Sex: Female
  Weight: 77 kg

DRUGS (13)
  1. EXJADE [Suspect]
     Indication: IRON OVERLOAD
     Dosage: 250 MG, ONCE
  2. EXJADE [Suspect]
     Dosage: 125 MG, ONCE
  3. EXJADE [Suspect]
     Dosage: 500 MG, FOUR TIMES
  4. SERTRALINE [Concomitant]
     Dosage: UNK UKN, UNK
  5. BROMAZEPAM [Concomitant]
     Dosage: UNK UKN, UNK
  6. DOXEPIN [Concomitant]
     Dosage: UNK UKN, UNK
  7. NORTRIPTYLINE [Concomitant]
     Dosage: UNK UKN, UNK
  8. HIXIZINE [Concomitant]
     Dosage: UNK UKN, UNK
  9. FOLIC ACID [Concomitant]
     Dosage: UNK UKN, UNK
  10. MAREVAN [Concomitant]
     Dosage: UNK UKN, UNK
  11. AMINOPHYLLINE [Concomitant]
     Dosage: UNK UKN, UNK
  12. PREDNISONE [Concomitant]
     Dosage: UNK UKN, UNK
  13. LORATADINE [Concomitant]
     Indication: PRURITUS
     Dosage: UNK UKN, UNK

REACTIONS (7)
  - Pneumonia [Recovering/Resolving]
  - Haemoglobin decreased [Unknown]
  - Arthralgia [Unknown]
  - Pain [Unknown]
  - Pruritus [Unknown]
  - Influenza [Unknown]
  - Cough [Unknown]
